FAERS Safety Report 15563674 (Version 1)
Quarter: 2018Q4

REPORT INFORMATION
  Report Type: Spontaneous
  Country: ES (occurrence: ES)
  Receive Date: 20181029
  Receipt Date: 20181029
  Transmission Date: 20190205
  Serious: Yes (Life-Threatening, Hospitalization, Other)
  Sender: FDA-Public Use
  Company Number: ES-TEVA-2018-ES-968641

PATIENT
  Age: 40 Year
  Sex: Male

DRUGS (4)
  1. VINBLASTINA [Interacting]
     Active Substance: VINBLASTINE
     Indication: HODGKIN^S DISEASE
     Dosage: 11 MG D?A 1 Y D?A 15 CAD
     Route: 042
     Dates: start: 20180830, end: 20180913
  2. DOXORUBICIN [Suspect]
     Active Substance: DOXORUBICIN
     Indication: HODGKIN^S DISEASE
     Dosage: 46 MG D?A 1 Y D?A 15 CAD 28 D?AS
     Route: 042
     Dates: start: 20180830, end: 20180913
  3. BLEOMICINA [Interacting]
     Active Substance: BLEOMYCIN SULFATE
     Indication: HODGKIN^S DISEASE
     Dosage: 18 MG D?A 1 Y D?A 15 CADA 28 D?AS
     Route: 042
     Dates: start: 20180830, end: 20180915
  4. DACARBACINA [Interacting]
     Active Substance: DACARBAZINE
     Indication: HODGKIN^S DISEASE
     Dosage: 690 MG D?A 1 Y 15 CADA 28 D?AS
     Route: 042
     Dates: start: 20180830, end: 20180913

REACTIONS (2)
  - Agranulocytosis [Recovered/Resolved]
  - Drug interaction [Unknown]

NARRATIVE: CASE EVENT DATE: 20180922
